FAERS Safety Report 23680226 (Version 1)
Quarter: 2024Q1

REPORT INFORMATION
  Report Type: Spontaneous
  Country: AU (occurrence: AU)
  Receive Date: 20240327
  Receipt Date: 20240327
  Transmission Date: 20240410
  Serious: Yes (Hospitalization, Other)
  Sender: FDA-Public Use
  Company Number: AU-JNJFOC-20240354011

PATIENT
  Age: 29 Year
  Sex: Female

DRUGS (11)
  1. INFLIXIMAB [Suspect]
     Active Substance: INFLIXIMAB
     Indication: Dermatomyositis
     Route: 041
  2. TOZINAMERAN [Suspect]
     Active Substance: TOZINAMERAN
     Indication: Product used for unknown indication
     Dates: start: 20220215
  3. METHOTREXATE [Suspect]
     Active Substance: METHOTREXATE
  4. AMITRIPTYLINE [Concomitant]
     Active Substance: AMITRIPTYLINE
  5. DILTIAZEM HYDROCHLORIDE [Concomitant]
     Active Substance: DILTIAZEM HYDROCHLORIDE
  6. DULOXETINE HYDROCHLORIDE [Concomitant]
     Active Substance: DULOXETINE HYDROCHLORIDE
  7. FOLIC ACID [Concomitant]
     Active Substance: FOLIC ACID
  8. MAGNESIUM ASPARTATE [Concomitant]
     Active Substance: MAGNESIUM ASPARTATE
  9. MIRTAZAPINE [Concomitant]
     Active Substance: MIRTAZAPINE
  10. PREDNISOLONE [Concomitant]
     Active Substance: PREDNISOLONE
  11. TAPENTADOL [Concomitant]
     Active Substance: TAPENTADOL

REACTIONS (14)
  - Multiple organ dysfunction syndrome [Recovered/Resolved]
  - Multisystem inflammatory syndrome [Recovering/Resolving]
  - Encephalopathy [Unknown]
  - Ischaemic hepatitis [Unknown]
  - Acute kidney injury [Recovered/Resolved]
  - Pericardial effusion [Recovering/Resolving]
  - C-reactive protein increased [Unknown]
  - Troponin increased [Unknown]
  - Hepatic failure [Unknown]
  - Chest pain [Recovering/Resolving]
  - Alanine aminotransferase increased [Unknown]
  - Oral herpes [Recovered/Resolved]
  - Pyrexia [Recovering/Resolving]
  - Off label use [Unknown]

NARRATIVE: CASE EVENT DATE: 20220222
